FAERS Safety Report 5442700-0 (Version None)
Quarter: 2007Q3

REPORT INFORMATION
  Report Type: 
  Country: None (occurrence: None)
  Receive Date: 20070904
  Receipt Date: 20070830
  Transmission Date: 20080115
  Serious: Yes (Other)
  Sender: FDA-Public Use
  Company Number: DE-MERCK-0708DEU00189

PATIENT
  Age: 63 Year
  Sex: Male

DRUGS (4)
  1. FOSAMAX PLUS D [Suspect]
     Indication: OSTEOPOROSIS
     Route: 048
     Dates: start: 20070703, end: 20070729
  2. FOSAMAX PLUS D [Suspect]
     Indication: SPINAL FRACTURE
     Route: 048
     Dates: start: 20070703, end: 20070729
  3. LEVETIRACETAM [Concomitant]
     Indication: EPILEPSY
     Route: 065
  4. PRIMIDONE [Concomitant]
     Indication: EPILEPSY
     Route: 065

REACTIONS (1)
  - GRAND MAL CONVULSION [None]
